FAERS Safety Report 4412717-3 (Version None)
Quarter: 2004Q2

REPORT INFORMATION
  Report Type: 
  Country: None (occurrence: None)
  Receive Date: 20040630
  Receipt Date: 20040513
  Transmission Date: 20050107
  Serious: No
  Sender: FDA-Public Use
  Company Number: 04P-163-0261055-00

PATIENT
  Age: 48 Year
  Sex: Female

DRUGS (7)
  1. HUMIRA [Suspect]
     Indication: RHEUMATOID ARTHRITIS
     Dosage: 40 MG, 1 IN 2 WK, INJECTION
     Dates: start: 20040427
  2. NIFEDIPINE [Concomitant]
  3. FOSINOPRIL SODIUM [Concomitant]
  4. ATENOLOL [Concomitant]
  5. ZOLPIDEM TARTRATE [Concomitant]
  6. FUROSEMIDE [Concomitant]
  7. RANITIDINE HYDROCHLORIDE [Concomitant]

REACTIONS (1)
  - INJECTION SITE HAEMORRHAGE [None]
